FAERS Safety Report 7749128-9 (Version None)
Quarter: 2011Q3

REPORT INFORMATION
  Report Type: 
  Country: None (occurrence: None)
  Receive Date: 20110909
  Receipt Date: 20110823
  Transmission Date: 20111222
  Serious: Yes (Hospitalization)
  Sender: FDA-Public Use
  Company Number: 11-262

PATIENT
  Age: 63 Year
  Sex: Male

DRUGS (12)
  1. AOLADEX (GOSERELIN) [Concomitant]
  2. PREDNISONE [Suspect]
     Indication: PROSTATE CANCER
     Dosage: 5 MG, ORAL
     Route: 048
     Dates: start: 20090904, end: 20100516
  3. GENATOSAN MULTIVITAMINS [Concomitant]
  4. ENOXAPARIN SODIUM [Concomitant]
  5. CYCLIZINE [Concomitant]
  6. LANSOPRAZOLE [Concomitant]
  7. IBUPROFEN [Suspect]
     Indication: BACK PAIN
     Dates: start: 20090918
  8. SUNITINIB MALATE [Suspect]
     Indication: PROSTATE CANCER
     Dosage: 25 MG, ORAL
     Route: 048
     Dates: start: 20090905, end: 20100513
  9. FENTANYL [Concomitant]
  10. MOVIPREP [Concomitant]
  11. OXYNORM (OXOCODONE HCI) [Concomitant]
  12. ACETAMINOPHEN [Concomitant]

REACTIONS (1)
  - VOMITING [None]
